FAERS Safety Report 12523300 (Version 2)
Quarter: 2016Q3

REPORT INFORMATION
  Report Type: Spontaneous
  Country: US (occurrence: US)
  Receive Date: 20160702
  Receipt Date: 20160830
  Transmission Date: 20161109
  Serious: No
  Sender: FDA-Public Use
  Company Number: US-ASTRAZENECA-2016SE62109

PATIENT
  Sex: Female
  Weight: 54.4 kg

DRUGS (6)
  1. SYMBICORT [Suspect]
     Active Substance: BUDESONIDE\FORMOTEROL FUMARATE DIHYDRATE
     Indication: EMPHYSEMA
     Dosage: 160MCG/4.5MCG,TWO PUFFS TWICE DAILY
     Route: 055
  2. FUROSEMIDE. [Concomitant]
     Active Substance: FUROSEMIDE
     Indication: DIURETIC THERAPY
  3. ENALAPRIL [Concomitant]
     Active Substance: ENALAPRIL
     Indication: BLOOD PRESSURE ABNORMAL
  4. CHOLCON [Concomitant]
     Indication: BLOOD POTASSIUM ABNORMAL
  5. COMBIVENT [Concomitant]
     Active Substance: ALBUTEROL SULFATE\IPRATROPIUM BROMIDE
  6. LEVASTATIN [Concomitant]
     Indication: BLOOD CALCIUM ABNORMAL

REACTIONS (4)
  - Dyspnoea [Recovered/Resolved]
  - Body height decreased [Unknown]
  - Underdose [Recovered/Resolved]
  - Product quality issue [Unknown]
